FAERS Safety Report 19091683 (Version 1)
Quarter: 2021Q2

REPORT INFORMATION
  Report Type: Spontaneous
  Country: US (occurrence: US)
  Receive Date: 20210402
  Receipt Date: 20210402
  Transmission Date: 20210717
  Serious: Yes (Other)
  Sender: FDA-Public Use
  Company Number: None

PATIENT
  Age: 45 Year
  Sex: Male
  Weight: 132 kg

DRUGS (3)
  1. BAMLANIVIMAB. [Suspect]
     Active Substance: BAMLANIVIMAB
     Route: 041
     Dates: start: 20210402, end: 20210402
  2. SODIUM CHLORIDE 0.9 % [Concomitant]
     Dates: start: 20210402, end: 20210402
  3. ETESEVIMAB. [Suspect]
     Active Substance: ETESEVIMAB
     Route: 041
     Dates: start: 20210402, end: 20210402

REACTIONS (5)
  - Back pain [None]
  - Dyspnoea [None]
  - Therapy cessation [None]
  - Chest discomfort [None]
  - Tunnel vision [None]

NARRATIVE: CASE EVENT DATE: 20210402
